FAERS Safety Report 4360744-7 (Version None)
Quarter: 2004Q2

REPORT INFORMATION
  Report Type: 
  Country: None (occurrence: None)
  Receive Date: 20040519
  Receipt Date: 20040507
  Transmission Date: 20050107
  Serious: Yes (Other)
  Sender: FDA-Public Use
  Company Number: A-CH2004-05536

PATIENT
  Age: 67 Year
  Sex: Male

DRUGS (3)
  1. TRACLEER [Suspect]
     Indication: PULMONARY HYPERTENSION
     Dosage: 62.5 MG, BID, ORAL
     Route: 048
     Dates: start: 20040216, end: 20040305
  2. MARCUMAR [Concomitant]
  3. VERAPAMIL [Concomitant]

REACTIONS (1)
  - RAYNAUD'S PHENOMENON [None]
